FAERS Safety Report 11976322 (Version 7)
Quarter: 2016Q4

REPORT INFORMATION
  Report Type: Spontaneous
  Country: CA (occurrence: CA)
  Receive Date: 20160129
  Receipt Date: 20161019
  Transmission Date: 20170206
  Serious: Yes (Other)
  Sender: FDA-Public Use
  Company Number: CA-SA-2015SA188793

PATIENT
  Age: 69 Year
  Sex: Female

DRUGS (6)
  1. HYDROXYCHLOROQUINE [Suspect]
     Active Substance: HYDROXYCHLOROQUINE
     Indication: RHEUMATOID ARTHRITIS
     Route: 065
     Dates: start: 20100323
  2. ORENCIA [Concomitant]
     Active Substance: ABATACEPT
     Dates: end: 201509
  3. XELJANZ [Concomitant]
     Active Substance: TOFACITINIB CITRATE
     Indication: RHEUMATOID ARTHRITIS
     Route: 048
     Dates: start: 20151210
  4. ARAVA [Suspect]
     Active Substance: LEFLUNOMIDE
     Indication: RHEUMATOID ARTHRITIS
     Route: 065
     Dates: start: 20150602
  5. METHOTREXATE. [Concomitant]
     Active Substance: METHOTREXATE
     Indication: RHEUMATOID ARTHRITIS
     Dosage: UP TO 20 MG?WEEKLY
     Dates: start: 20130122, end: 20130322
  6. ENBREL [Concomitant]
     Active Substance: ETANERCEPT
     Indication: RHEUMATOID ARTHRITIS
     Dates: start: 20130501, end: 20130701

REACTIONS (19)
  - Malaise [Unknown]
  - Limb discomfort [Unknown]
  - Headache [Unknown]
  - White blood cell count decreased [Unknown]
  - Hypertension [Not Recovered/Not Resolved]
  - Cataract [Unknown]
  - Arthralgia [Recovering/Resolving]
  - Viral infection [Recovered/Resolved]
  - Diarrhoea [Recovered/Resolved]
  - Drug ineffective [Unknown]
  - Nausea [Recovered/Resolved]
  - Pain in extremity [Unknown]
  - Dizziness [Recovered/Resolved]
  - Activities of daily living impaired [Unknown]
  - Abdominal discomfort [Unknown]
  - Pain [Unknown]
  - Peripheral swelling [Unknown]
  - Arthralgia [Unknown]
  - Myalgia [Recovered/Resolved]

NARRATIVE: CASE EVENT DATE: 20151210
